FAERS Safety Report 11838348 (Version 1)
Quarter: 2015Q4

REPORT INFORMATION
  Report Type: Spontaneous
  Country: None (occurrence: US)
  Receive Date: 20151215
  Receipt Date: 20151215
  Transmission Date: 20160305
  Serious: Yes (Life-Threatening)
  Sender: FDA-Public Use
  Company Number: US-ALK ABELLO INC-1045520

PATIENT
  Age: 29 Year
  Sex: Female

DRUGS (20)
  1. BIRCH [Suspect]
     Active Substance: BETULA NIGRA POLLEN
     Route: 058
  2. ALTERNARIA [Suspect]
     Active Substance: ALTERNARIA ALTERNATA
     Route: 058
  3. RAGWEED MIXTURE [Suspect]
     Active Substance: AMBROSIA ARTEMISIIFOLIA POLLEN\AMBROSIA BIDENTATA POLLEN\AMBROSIA PSILOSTACHYA POLLEN\AMBROSIA TRIFIDA POLLEN
     Route: 058
  4. ENGLISH PLANTAIN POLLEN [Suspect]
     Active Substance: PLANTAGO LANCEOLATA POLLEN
     Route: 058
  5. LORATADINE. [Concomitant]
     Active Substance: LORATADINE
     Route: 048
  6. BERMUDA GRASS, STANDARDIZED [Suspect]
     Active Substance: CYNODON DACTYLON POLLEN
     Route: 058
  7. MAPLE POLLEN MIXTURE [Suspect]
     Active Substance: ACER RUBRUM POLLEN\ACER SACCHARINUM POLLEN\ACER SACCHARUM POLLEN
     Route: 058
  8. POPLAR [Suspect]
     Active Substance: POPULUS DELTOIDES POLLEN
     Route: 058
  9. COCKROACH 0.5 ML [Suspect]
     Active Substance: ALLERGENIC EXTRACT- COCKROACH PERIPLANETA AMERICANA
     Route: 058
  10. KENTUCKY BLUEGRASS (JUNE), STANDARDIZED [Suspect]
     Active Substance: POA PRATENSIS POLLEN
     Route: 058
  11. OAK MIXTURE [Suspect]
     Active Substance: QUERCUS ALBA POLLEN\QUERCUS MACROCARPA POLLEN\QUERCUS MUEHLENBERGII POLLEN\QUERCUS PALUSTRIS POLLEN\QUERCUS RUBRA POLLEN\QUERCUS STELLATA POLLEN\QUERCUS VELUTINA POLLEN\QUERCUS VIRGINIANA POLLEN
     Route: 058
  12. SYCAMORE POLLEN [Suspect]
     Active Substance: PLATANUS OCCIDENTALIS POLLEN
     Route: 058
  13. CARELESS WEED POLLEN [Suspect]
     Active Substance: AMARANTHUS PALMERI POLLEN
     Route: 058
  14. ASPERGILLUS NIGER [Suspect]
     Active Substance: ASPERGILLUS BRASILIENSIS
     Route: 058
  15. ELM [Suspect]
     Active Substance: ELM
     Route: 058
  16. LAMBS QUARTERS POLLEN [Suspect]
     Active Substance: CHENOPODIUM ALBUM POLLEN
     Route: 058
  17. FLUTICASONE [Concomitant]
     Active Substance: FLUTICASONE\FLUTICASONE PROPIONATE
     Route: 045
  18. CAT HAIR, STANDARDIZED [Suspect]
     Active Substance: FELIS CATUS HAIR
     Route: 058
  19. MUCINEX [Concomitant]
     Active Substance: GUAIFENESIN
     Route: 048
  20. MIXTURE OF STANDARDIZED MITES [Suspect]
     Active Substance: DERMATOPHAGOIDES FARINAE\DERMATOPHAGOIDES PTERONYSSINUS
     Route: 058

REACTIONS (4)
  - Diarrhoea [Recovered/Resolved]
  - Vomiting [Recovered/Resolved]
  - Swelling [Recovered/Resolved]
  - Abdominal pain [Recovered/Resolved]

NARRATIVE: CASE EVENT DATE: 20150422
